FAERS Safety Report 8359256-5 (Version None)
Quarter: 2012Q1

REPORT INFORMATION
  Report Type: 
  Country: None (occurrence: None)
  Receive Date: 20111004
  Receipt Date: 20110819
  Transmission Date: 20120608
  Serious: No
  Sender: FDA-Public Use
  Company Number: 2011IP000151

PATIENT
  Sex: Female

DRUGS (1)
  1. BEPREVE [Suspect]
     Indication: HYPERSENSITIVITY
     Dosage: ; OPH
     Route: 047

REACTIONS (1)
  - EYELID OEDEMA [None]
